FAERS Safety Report 4755544-X (Version None)
Quarter: 2005Q3

REPORT INFORMATION
  Report Type: 
  Country: None (occurrence: None)
  Receive Date: 20050830
  Receipt Date: 20050511
  Transmission Date: 20060218
  Serious: No
  Sender: FDA-Public Use
  Company Number: US-BRISTOL-MYERS SQUIBB COMPANY-12964847

PATIENT
  Sex: Male
  Weight: 43 kg

DRUGS (1)
  1. ABILIFY [Suspect]
     Indication: BIPOLAR DISORDER
     Dosage: 2.5 MG THEN INCR TO 5.0 MG THEN DECR TO 2.5 MG

REACTIONS (1)
  - DYSTONIA [None]
